FAERS Safety Report 7913750-7 (Version None)
Quarter: 2011Q4

REPORT INFORMATION
  Report Type: 
  Country: None (occurrence: None)
  Receive Date: 20111110
  Receipt Date: 20111027
  Transmission Date: 20120403
  Serious: Yes (Hospitalization, Other)
  Sender: FDA-Public Use
  Company Number: 2010-1747

PATIENT
  Age: 51 Year
  Sex: Female
  Weight: 51.7 kg

DRUGS (7)
  1. RADIESSE (CALCIUM COMPOUNDS) [Concomitant]
  2. MULTIVITAMIN (MULTIVITAMIN /00831701/) [Concomitant]
  3. SCULPTRA (ALL OTHER THERAPEUTIC PRODUCTS) [Concomitant]
  4. RESTYLANE (HYALURONIC ACID) [Concomitant]
  5. DYSPORT [Suspect]
     Indication: SKIN WRINKLING
     Dosage: 100 UNITS (100 UNITS, SINGLE CYCLE), UNKNOWN
     Dates: start: 20100423, end: 20100423
  6. DYSPORT [Suspect]
     Indication: OFF LABEL USE
  7. DYSPORT [Suspect]
     Indication: SKIN WRINKLING

REACTIONS (33)
  - ANXIETY [None]
  - HYPOAESTHESIA [None]
  - SOMNOLENCE [None]
  - HEADACHE [None]
  - HYPOPHAGIA [None]
  - DEHYDRATION [None]
  - CONVULSION [None]
  - FATIGUE [None]
  - DRY MOUTH [None]
  - MUSCLE SPASMS [None]
  - WEIGHT DECREASED [None]
  - HYPERACUSIS [None]
  - NEURALGIA [None]
  - MUSCLE TIGHTNESS [None]
  - NEUROPATHY PERIPHERAL [None]
  - MUSCULOSKELETAL DISORDER [None]
  - EYELID PTOSIS [None]
  - FEELING ABNORMAL [None]
  - DYSPHAGIA [None]
  - INSOMNIA [None]
  - GLARE [None]
  - IMPAIRED WORK ABILITY [None]
  - DRUG INTOLERANCE [None]
  - DRUG INEFFECTIVE [None]
  - DYSPNOEA [None]
  - CHEST DISCOMFORT [None]
  - DIZZINESS [None]
  - ABNORMAL SENSATION IN EYE [None]
  - PHOTOPHOBIA [None]
  - INFLAMMATION [None]
  - TREMOR [None]
  - PARAESTHESIA [None]
  - MIGRAINE [None]
